FAERS Safety Report 5492783-7 (Version None)
Quarter: 2007Q4

REPORT INFORMATION
  Report Type: 
  Country: None (occurrence: None)
  Receive Date: 20071023
  Receipt Date: 20071017
  Transmission Date: 20080405
  Serious: Yes (Other)
  Sender: FDA-Public Use
  Company Number: US-JNJFOC-20071004402

PATIENT
  Age: 75 Year
  Sex: Female
  Weight: 63.5 kg

DRUGS (12)
  1. SIMPLY SLEEP NIGHTTIME [Suspect]
  2. SIMPLY SLEEP NIGHTTIME [Suspect]
  3. SIMPLY SLEEP NIGHTTIME [Suspect]
     Indication: INSOMNIA
  4. UNSPECIFIED EYE DROPS [Suspect]
     Indication: ERYTHEMA
  5. ALBUTEROL [Concomitant]
     Indication: ASTHMA
  6. FEXOFENADINE [Concomitant]
     Indication: IRRITABLE BOWEL SYNDROME
  7. FEXOFENADINE [Concomitant]
     Indication: ASTHMA
  8. ZOLOFT [Concomitant]
     Indication: DEPRESSION
  9. LEVOTHYROXINE SODIUM [Concomitant]
     Indication: THYROID DISORDER
  10. SINGULAIR [Concomitant]
     Indication: ASTHMA
  11. PREVACID [Concomitant]
     Indication: GASTROOESOPHAGEAL REFLUX DISEASE
  12. UNSPECIFIED NEBULIZER [Concomitant]
     Indication: ASTHMA

REACTIONS (3)
  - DRUG INEFFECTIVE [None]
  - INCORRECT DOSE ADMINISTERED [None]
  - VISION BLURRED [None]
